FAERS Safety Report 7815947-3 (Version None)
Quarter: 2011Q4

REPORT INFORMATION
  Report Type: 
  Country: None (occurrence: None)
  Receive Date: 20111014
  Receipt Date: 20110930
  Transmission Date: 20120403
  Serious: Yes (Other)
  Sender: FDA-Public Use
  Company Number: GB-ROCHE-1001115

PATIENT
  Sex: Male

DRUGS (3)
  1. CAPECITABINE [Suspect]
     Indication: COLON CANCER STAGE III
  2. OXALIPLATIN [Suspect]
     Indication: COLON CANCER STAGE III
  3. FLUOROURACIL [Suspect]
     Indication: COLON CANCER STAGE III

REACTIONS (1)
  - PULMONARY FIBROSIS [None]
